FAERS Safety Report 17879600 (Version 1)
Quarter: 2020Q2

REPORT INFORMATION
  Report Type: Spontaneous
  Country: GB (occurrence: GB)
  Receive Date: 20200610
  Receipt Date: 20200610
  Transmission Date: 20200714
  Serious: Yes (Hospitalization)
  Sender: FDA-Public Use
  Company Number: GB-BRISTOL-MYERS SQUIBB COMPANY-BMS-2020-044889

PATIENT
  Age: 78 Year

DRUGS (11)
  1. CARBOCISTEINE [Concomitant]
     Active Substance: CARBOCYSTEINE
     Indication: PRODUCT USED FOR UNKNOWN INDICATION
     Dosage: 2250 MILLIGRAM, QD
     Route: 065
  2. ARANESP [Concomitant]
     Active Substance: DARBEPOETIN ALFA
     Indication: DIALYSIS
     Dosage: ON MONDAYS
     Route: 065
  3. DIAFER [IRON ISOMALTOSIDE 1000] [Concomitant]
     Indication: DIALYSIS
     Dosage: 100MG/2ML
     Route: 065
  4. RANITIDINE. [Concomitant]
     Active Substance: RANITIDINE
     Indication: PRODUCT USED FOR UNKNOWN INDICATION
     Dosage: 300 MILLIGRAM, QD
     Route: 065
  5. DIGOXIN. [Concomitant]
     Active Substance: DIGOXIN
     Indication: PRODUCT USED FOR UNKNOWN INDICATION
     Dosage: IN MORNING
     Route: 065
  6. BISOPROLOL [Concomitant]
     Active Substance: BISOPROLOL
     Indication: PRODUCT USED FOR UNKNOWN INDICATION
     Dosage: IN MORNING
     Route: 065
  7. NOVOMIX [Concomitant]
     Active Substance: INSULIN ASPART
     Indication: PRODUCT USED FOR UNKNOWN INDICATION
     Dosage: IN MORNING, 100UNITS/ML, 3ML PRE-FILLED
     Route: 058
  8. FUROSEMIDE. [Concomitant]
     Active Substance: FUROSEMIDE
     Indication: DIALYSIS
     Dosage: 160 MILLIGRAM, QD
     Route: 065
  9. RENAVIT [Concomitant]
     Indication: DIALYSIS
     Dosage: IN MORNING
     Route: 065
  10. WARFARIN SODIUM. [Suspect]
     Active Substance: WARFARIN SODIUM
     Indication: ATRIAL FIBRILLATION
     Dosage: 5MG MONDAY AND FRIDAY, 6MG REST OF THE WEEK. TARGET INR 2-3
     Route: 065
  11. ALFACALCIDOL [Concomitant]
     Active Substance: ALFACALCIDOL
     Indication: DIALYSIS
     Dosage: IN MORNING
     Route: 065

REACTIONS (5)
  - Pyrexia [Unknown]
  - Epistaxis [Recovered/Resolved]
  - Dyspnoea [Unknown]
  - Productive cough [Unknown]
  - Haemoptysis [Recovered/Resolved]
